FAERS Safety Report 5270514-3 (Version None)
Quarter: 2007Q1

REPORT INFORMATION
  Report Type: 
  Country: None (occurrence: None)
  Receive Date: 20070315
  Receipt Date: 20070301
  Transmission Date: 20070707
  Serious: Yes (Other)
  Sender: FDA-Public Use
  Company Number: 2007US-06222

PATIENT
  Age: 84 Year
  Sex: Female

DRUGS (2)
  1. LORAZEPAM [Suspect]
     Indication: ANXIETY
     Dosage: 0.05 MG, PRN, ORAL
     Route: 048
  2. XALITIN EYE DROPS [Concomitant]

REACTIONS (4)
  - DRY MOUTH [None]
  - DRY SKIN [None]
  - GAIT DISTURBANCE [None]
  - UPPER LIMB FRACTURE [None]
